FAERS Safety Report 26014630 (Version 1)
Quarter: 2025Q4

REPORT INFORMATION
  Report Type: Spontaneous
  Country: EU (occurrence: EU)
  Receive Date: 20251108
  Receipt Date: 20251108
  Transmission Date: 20260118
  Serious: Yes (Other)
  Sender: IPSEN BIOPHARMACEUTICALS, INC.
  Company Number: None

PATIENT
  Age: 41 Year
  Sex: Female
  Weight: 50 kg

DRUGS (1)
  1. BOTULINUM TOXIN TYPE A [Suspect]
     Active Substance: BOTULINUM TOXIN TYPE A
     Indication: Skin wrinkling
     Dosage: 125 SPEYWOOD UNITS
     Route: 058
     Dates: start: 20250410, end: 20250410

REACTIONS (5)
  - Botulism [Not Recovered/Not Resolved]
  - Salivary hyposecretion [Not Recovered/Not Resolved]
  - Dyspnoea [Not Recovered/Not Resolved]
  - Myalgia [Not Recovered/Not Resolved]
  - Speech disorder [Not Recovered/Not Resolved]

NARRATIVE: CASE EVENT DATE: 20250413
